FAERS Safety Report 24179901 (Version 1)
Quarter: 2024Q3

REPORT INFORMATION
  Report Type: Spontaneous
  Country: US (occurrence: US)
  Receive Date: 20240806
  Receipt Date: 20240806
  Transmission Date: 20241017
  Serious: No
  Sender: GALDERMA
  Company Number: US-GALDERMA-US2024009637

PATIENT

DRUGS (2)
  1. DIFFERIN GEL [Suspect]
     Active Substance: ADAPALENE
     Indication: Acne
     Dosage: 1 DOSAGE FORM, QD, 1.6 OUNCES, APPLIED ONCE DAILY AT NIGHT
     Route: 061
     Dates: start: 2024
  2. PURPOSE [Concomitant]
     Active Substance: OCTINOXATE\OCTISALATE\OXYBENZONE
     Indication: Product used for unknown indication

REACTIONS (2)
  - Acne [Not Recovered/Not Resolved]
  - Pain of skin [Not Recovered/Not Resolved]

NARRATIVE: CASE EVENT DATE: 20240101
